FAERS Safety Report 7629543-4 (Version None)
Quarter: 2011Q3

REPORT INFORMATION
  Report Type: 
  Country: None (occurrence: None)
  Receive Date: 20110722
  Receipt Date: 20110408
  Transmission Date: 20111222
  Serious: No
  Sender: FDA-Public Use
  Company Number: US-BAYER-2011-023915

PATIENT
  Sex: Female

DRUGS (2)
  1. BETASERON [Suspect]
     Dosage: 1 ML, QOD
     Route: 058
     Dates: start: 20101001
  2. BETASERON [Suspect]
     Indication: PRODUCT USED FOR UNKNOWN INDICATION
     Dosage: TITRATING
     Route: 058
     Dates: start: 20101001

REACTIONS (5)
  - INJECTION SITE PAIN [None]
  - RASH [None]
  - ABSCESS LIMB [None]
  - ERYTHEMA [None]
  - LOWER EXTREMITY MASS [None]
